FAERS Safety Report 9731506 (Version 3)
Quarter: 2013Q3

REPORT INFORMATION
  Report Type: Spontaneous
  Country: US (occurrence: None)
  Receive Date: 20120711
  Receipt Date: 20130708
  Transmission Date: 20140515
  Serious: Yes (Other)
  Sender: FDA-Public Use
  Company Number: 2012-344

PATIENT
  Age: 53 Year
  Sex: Female

DRUGS (2)
  1. PRIALT [Suspect]
     Indication: MUSCLE SPASTICITY
     Dosage: 0.07 MCG, ONCE HOUR, INTRATHECAL
     Route: 037
     Dates: end: 20120626
  2. BACLOFEN [Suspect]
     Indication: MUSCLE SPASTICITY
     Dosage: 45.8 MCG, ONCE/HOUR, INTRATHECAL
     Route: 037

REACTIONS (5)
  - Muscle spasticity [None]
  - Nervous system disorder [None]
  - Dysphagia [None]
  - Diplopia [None]
  - Drug ineffective [None]
